FAERS Safety Report 10197838 (Version 1)
Quarter: 2014Q2

REPORT INFORMATION
  Report Type: Not Available
  Country: CA (occurrence: CA)
  Receive Date: 20140527
  Receipt Date: 20140527
  Transmission Date: 20141212
  Serious: Yes (Other)
  Sender: FDA-Public Use
  Company Number: CA-IAC KOREA XML-CAN-2014-0004917

PATIENT
  Sex: Female

DRUGS (3)
  1. OXYNEO [Suspect]
     Indication: PRODUCT USED FOR UNKNOWN INDICATION
     Dosage: UNK
     Route: 065
  2. NAPROXEN [Suspect]
     Indication: PRODUCT USED FOR UNKNOWN INDICATION
     Dosage: UNK
     Route: 065
  3. VARENICLINE TARTRATE [Suspect]
     Indication: PRODUCT USED FOR UNKNOWN INDICATION
     Dosage: UNK
     Route: 065

REACTIONS (5)
  - Irritable bowel syndrome [Unknown]
  - Drug hypersensitivity [Unknown]
  - Irritability [Unknown]
  - Constipation [Unknown]
  - Swelling [Unknown]
